FAERS Safety Report 5807711-1 (Version None)
Quarter: 2008Q3

REPORT INFORMATION
  Report Type: 
  Country: None (occurrence: None)
  Receive Date: 20080711
  Receipt Date: 20080702
  Transmission Date: 20090109
  Serious: Yes (Other)
  Sender: FDA-Public Use
  Company Number: DE-WYE-H04384408

PATIENT
  Age: 86 Year
  Sex: Female

DRUGS (1)
  1. CORDAREX [Suspect]
     Dosage: UNKNOWN
     Route: 065
     Dates: start: 20080527

REACTIONS (1)
  - PULMONARY OEDEMA [None]
